FAERS Safety Report 8626518 (Version 3)
Quarter: 2013Q1

REPORT INFORMATION
  Report Type: Spontaneous
  Country: US (occurrence: US)
  Receive Date: 20120620
  Receipt Date: 20130207
  Transmission Date: 20140127
  Serious: Yes (Other)
  Sender: FDA-Public Use
  Company Number: US-ASTRAZENECA-2012SE39118

PATIENT
  Age: 91 Year
  Sex: Female

DRUGS (7)
  1. NEXIUM [Suspect]
     Indication: ULCER HAEMORRHAGE
     Route: 048
  2. NEXIUM [Suspect]
     Indication: GASTROOESOPHAGEAL REFLUX DISEASE
     Route: 048
  3. ATENOLOL [Concomitant]
     Indication: HYPERTENSION
  4. NORVASC [Concomitant]
     Indication: HYPERTENSION
  5. ZOCOR [Concomitant]
     Indication: BLOOD CHOLESTEROL ABNORMAL
  6. ZANTAC [Concomitant]
  7. TUMS [Concomitant]

REACTIONS (7)
  - Cerebrovascular accident [Unknown]
  - Abasia [Unknown]
  - Ulcer haemorrhage [Unknown]
  - Dysgraphia [Unknown]
  - Abdominal discomfort [Unknown]
  - Malaise [Unknown]
  - Intentional drug misuse [Unknown]
